FAERS Safety Report 10139223 (Version 1)
Quarter: 2014Q2

REPORT INFORMATION
  Report Type: Spontaneous
  Country: FR (occurrence: FR)
  Receive Date: 20140429
  Receipt Date: 20140429
  Transmission Date: 20141212
  Serious: Yes (Hospitalization)
  Sender: FDA-Public Use
  Company Number: PHHY2014FR051000

PATIENT
  Age: 87 Year
  Sex: Female

DRUGS (6)
  1. CARBAMAZEPINE SANDOZ [Suspect]
     Indication: HEADACHE
     Dosage: 200 MG, UNK
     Route: 048
     Dates: start: 20110806, end: 20110809
  2. RIVOTRIL [Suspect]
     Dosage: 20 DF, QD
     Dates: start: 20110801, end: 20110806
  3. APROVEL [Concomitant]
     Dosage: 150 MG, UNK
  4. IMOVANE [Concomitant]
     Dosage: 7.5 MG, UNK
     Route: 065
  5. LAROXYL [Concomitant]
     Dosage: UNK UKN, UNK
     Route: 048
  6. FLUDEX [Concomitant]
     Dosage: UNK UKN, UNK
     Route: 048

REACTIONS (3)
  - Hyponatraemia [Recovered/Resolved]
  - Inappropriate antidiuretic hormone secretion [Recovered/Resolved]
  - Bradycardia [Recovered/Resolved]
